FAERS Safety Report 20742146 (Version 1)
Quarter: 2022Q2

REPORT INFORMATION
  Report Type: Spontaneous
  Country: GR (occurrence: GR)
  Receive Date: 20220423
  Receipt Date: 20220423
  Transmission Date: 20220721
  Serious: Yes (Hospitalization, Other)
  Sender: FDA-Public Use
  Company Number: GR-Indoco-000295

PATIENT
  Age: 74 Year
  Sex: Male

DRUGS (2)
  1. NEOSTIGMINE METHYLSULFATE [Interacting]
     Active Substance: NEOSTIGMINE METHYLSULFATE
     Indication: Intestinal pseudo-obstruction
     Dosage: 2.5 MG OVER A FEW MINUTES
  2. AMIODARONE [Interacting]
     Active Substance: AMIODARONE
     Indication: Atrial fibrillation
     Dosage: LOADING DOSE WAS 5 MG/MIN (300 MG IN 1 HOUR)
     Route: 042

REACTIONS (2)
  - Drug interaction [Unknown]
  - Atrioventricular block complete [Recovered/Resolved]
